FAERS Safety Report 5370593-9 (Version None)
Quarter: 2007Q2

REPORT INFORMATION
  Report Type: 
  Country: None (occurrence: None)
  Receive Date: 20070626
  Receipt Date: 20070620
  Transmission Date: 20071010
  Serious: Yes (Hospitalization, Other)
  Sender: FDA-Public Use
  Company Number: US-ASTRAZENECA-2007UW14794

PATIENT
  Age: 15 Year
  Sex: Female
  Weight: 73.9 kg

DRUGS (10)
  1. SEROQUEL [Suspect]
     Route: 048
     Dates: start: 20060309
  2. CELEXA [Suspect]
     Indication: DEPRESSION
     Dates: start: 20060309
  3. FLAGYL [Suspect]
     Indication: CROHN'S DISEASE
     Dates: start: 20050624
  4. PENTASA [Concomitant]
  5. AZATHIOPRINE [Concomitant]
  6. AMOXICILLIN [Concomitant]
  7. HYOSCYAMINE ER [Concomitant]
  8. PREVACID [Concomitant]
  9. METRONIDAZOLE [Concomitant]
  10. AMITRIPTYLINE HCL [Concomitant]

REACTIONS (2)
  - SUICIDAL IDEATION [None]
  - SUICIDE ATTEMPT [None]
